FAERS Safety Report 9664265 (Version 14)
Quarter: 2014Q4

REPORT INFORMATION
  Report Type: Spontaneous
  Country: US (occurrence: US)
  Receive Date: 20131101
  Receipt Date: 20141009
  Transmission Date: 20150529
  Serious: Yes (Hospitalization, Congenital Anomaly, Other)
  Sender: FDA-Public Use
  Company Number: US-PFIZER INC-2013311502

PATIENT
  Sex: Male
  Weight: 4 kg

DRUGS (14)
  1. ZOFRAN [Concomitant]
     Active Substance: ONDANSETRON HYDROCHLORIDE
     Indication: VOMITING
  2. AZITHROMYCIN [Concomitant]
     Active Substance: AZITHROMYCIN ANHYDROUS
     Dosage: 250 MG, 1X/DAY
     Route: 064
     Dates: start: 20080125
  3. PRENATAL VITAMINS [Concomitant]
     Active Substance: VITAMINS
     Dosage: 1 DF, 1X/DAY
     Route: 064
  4. PREMESISRX [Concomitant]
     Active Substance: VITAMINS
     Dosage: UNK, 1X/DAY
     Route: 064
     Dates: start: 20070919
  5. PRENATE ELITE [Concomitant]
     Active Substance: .ALPHA.-TOCOPHEROL\ASCORBIC ACID\BIOTIN\CALCIUM CARBONATE\CHOLECALCIFEROL\COPPER\CYANOCOBALAMIN\FERROUS FUMARATE\FOLIC ACID\IODINE\MAGNESIUM\NIACINAMIDE\PANTOTHENIC ACID\PYRIDOXINE\RIBOFLAVIN\THIAMINE\VITAMIN A\ZINC
     Dosage: ONCE DAILY
     Route: 064
     Dates: start: 20070919
  6. DOCQLACE [Concomitant]
     Active Substance: DOCUSATE SODIUM
     Dosage: 100 MG, 2X/DAY
     Route: 064
     Dates: start: 20071010
  7. ONDANSETRON [Concomitant]
     Active Substance: ONDANSETRON
     Dosage: 4 MG, 3X/DAY AS NEEDED
     Route: 064
     Dates: start: 20070908
  8. ZOLOFT [Suspect]
     Active Substance: SERTRALINE HYDROCHLORIDE
     Dosage: 50 MG, 1X/DAY
     Route: 064
     Dates: start: 20060216
  9. NATALCARE GLOSS TABS [Concomitant]
     Dosage: UNK, 1X/DAY
     Route: 064
     Dates: start: 20070919
  10. AZITHROMYCIN [Concomitant]
     Active Substance: AZITHROMYCIN ANHYDROUS
     Dosage: 250 MG, TWO TABLETS AT ONCE
     Route: 064
     Dates: start: 20080124, end: 20080124
  11. ZITHROMAX [Concomitant]
     Active Substance: AZITHROMYCIN DIHYDRATE
     Dosage: UNK
     Route: 064
  12. ZOFRAN [Concomitant]
     Active Substance: ONDANSETRON HYDROCHLORIDE
     Indication: NAUSEA
     Dosage: 4 MG, 3X/DAY AS NEEDED
     Route: 064
     Dates: start: 20070917
  13. PROMETHEGAN [Concomitant]
     Active Substance: PROMETHAZINE HYDROCHLORIDE
     Dosage: 25 MG, 2X/DAY AS NEEDED
     Route: 064
     Dates: start: 20070917
  14. ONDANSETRON [Concomitant]
     Active Substance: ONDANSETRON
     Dosage: 4 MG, 1X/DAY
     Route: 064
     Dates: start: 20071010

REACTIONS (4)
  - Cleft lip and palate [Unknown]
  - Maternal exposure during pregnancy [Unknown]
  - Feeding disorder neonatal [Unknown]
  - Eustachian tube dysfunction [Unknown]

NARRATIVE: CASE EVENT DATE: 20080405
